FAERS Safety Report 24569695 (Version 3)
Quarter: 2025Q3

REPORT INFORMATION
  Report Type: Report from Study
  Country: US (occurrence: US)
  Receive Date: 20241031
  Receipt Date: 20250802
  Transmission Date: 20251021
  Serious: Yes (Hospitalization, Other)
  Sender: ALEXION PHARMACEUTICALS
  Company Number: US-AstraZeneca-CH-00733156A

PATIENT
  Sex: Female

DRUGS (1)
  1. OSIMERTINIB [Suspect]
     Active Substance: OSIMERTINIB

REACTIONS (12)
  - Metastases to central nervous system [Unknown]
  - Malignant neoplasm progression [Unknown]
  - Pulmonary embolism [Unknown]
  - Malaise [Unknown]
  - Dysstasia [Unknown]
  - Wheelchair user [Unknown]
  - Metastases to liver [Unknown]
  - Metastases to bone [Unknown]
  - Metastasis [Unknown]
  - Metastases to adrenals [Unknown]
  - Metastases to lymph nodes [Unknown]
  - Haemorrhage [Unknown]
